FAERS Safety Report 7167160 (Version 9)
Quarter: 2013Q1

REPORT INFORMATION
  Report Type: Spontaneous
  Country: CA (occurrence: CA)
  Receive Date: 20091104
  Receipt Date: 20130103
  Transmission Date: 20140127
  Serious: Yes (Hospitalization, Other)
  Sender: FDA-Public Use
  Company Number: CA-ROCHE-GNE293364

PATIENT
  Age: 28 Year
  Sex: Female

DRUGS (3)
  1. OMALIZUMAB [Suspect]
     Indication: ASTHMA
     Route: 058
     Dates: start: 20080616
  2. OMALIZUMAB [Suspect]
     Route: 065
     Dates: start: 20100304
  3. OMALIZUMAB [Suspect]
     Route: 058
     Dates: start: 20090804

REACTIONS (13)
  - Nasal polyps [Recovering/Resolving]
  - Neck pain [Unknown]
  - Musculoskeletal pain [Unknown]
  - Asthma [Unknown]
  - Blood pressure decreased [Unknown]
  - Wheezing [Unknown]
  - Increased upper airway secretion [Unknown]
  - Nasal congestion [Unknown]
  - Nasopharyngitis [Unknown]
  - Dyspnoea [Unknown]
  - Lung infection [Unknown]
  - Productive cough [Unknown]
  - Rales [Unknown]
